FAERS Safety Report 8115363-3 (Version None)
Quarter: 2012Q1

REPORT INFORMATION
  Report Type: 
  Country: None (occurrence: None)
  Receive Date: 20120206
  Receipt Date: 20120206
  Transmission Date: 20120608
  Serious: Yes (Other)
  Sender: FDA-Public Use
  Company Number: None

PATIENT
  Age: 26 Year
  Sex: Female
  Weight: 70.306 kg

DRUGS (1)
  1. BACTRIM [Suspect]
     Indication: URINARY TRACT INFECTION
     Dosage: 1 TAB TWICE DAILY
     Route: 048
     Dates: start: 20120109, end: 20120112

REACTIONS (11)
  - PRURITUS [None]
  - SWOLLEN TONGUE [None]
  - GLOSSODYNIA [None]
  - HYPERSOMNIA [None]
  - FATIGUE [None]
  - ANAL PRURITUS [None]
  - STOMATITIS [None]
  - NAUSEA [None]
  - VULVOVAGINAL PRURITUS [None]
  - VULVOVAGINAL SWELLING [None]
  - PERINEAL LACERATION [None]
